FAERS Safety Report 22601039 (Version 16)
Quarter: 2024Q1

REPORT INFORMATION
  Report Type: Report from Study
  Country: RU (occurrence: RU)
  Receive Date: 20230614
  Receipt Date: 20240217
  Transmission Date: 20240410
  Serious: Yes (Other)
  Sender: FDA-Public Use
  Company Number: RU-002147023-NVSC2023RU132154

PATIENT
  Age: 3 Year
  Sex: Female
  Weight: 13.2 kg

DRUGS (4)
  1. ZOLGENSMA [Suspect]
     Active Substance: ONASEMNOGENE ABEPARVOVEC-XIOI
     Indication: Spinal muscular atrophy
     Dosage: 74.3 ML, ONCE/SINGLE
     Route: 041
     Dates: start: 20230517, end: 20230517
  2. PREDNISOLONE [Concomitant]
     Active Substance: PREDNISOLONE
     Indication: Product used for unknown indication
     Dosage: 1 MG/KG, QD 2/8 TABLET IN THE MORNING ONCE A DAY)
     Route: 065
     Dates: start: 20230515
  3. PREDNISOLONE [Concomitant]
     Active Substance: PREDNISOLONE
     Dosage: UNK, QD (2/8 TABLET IN THE MORNING ONCE A DAY)
     Route: 065
  4. NEXIUM [Concomitant]
     Active Substance: ESOMEPRAZOLE MAGNESIUM
     Indication: Product used for unknown indication
     Dosage: 12 ML, QD (IN THE EVENING ONCE A DAY)
     Route: 065

REACTIONS (18)
  - Prothrombin time shortened [Not Recovered/Not Resolved]
  - Blood creatinine decreased [Not Recovered/Not Resolved]
  - Activated partial thromboplastin time shortened [Not Recovered/Not Resolved]
  - White blood cell count increased [Unknown]
  - Alanine aminotransferase increased [Not Recovered/Not Resolved]
  - Aspartate aminotransferase increased [Not Recovered/Not Resolved]
  - Blood lactate dehydrogenase increased [Not Recovered/Not Resolved]
  - Platelet count decreased [Not Recovered/Not Resolved]
  - Blood bilirubin decreased [Not Recovered/Not Resolved]
  - Laboratory test abnormal [Not Recovered/Not Resolved]
  - Blood iron increased [Unknown]
  - Mean cell haemoglobin concentration decreased [Unknown]
  - Haemoglobin increased [Unknown]
  - Red blood cell count increased [Unknown]
  - Platelet count increased [Unknown]
  - Monocyte percentage increased [Unknown]
  - Blood alkaline phosphatase decreased [Unknown]
  - Troponin I increased [Unknown]

NARRATIVE: CASE EVENT DATE: 20230518
